FAERS Safety Report 18467973 (Version 1)
Quarter: 2020Q4

REPORT INFORMATION
  Report Type: Report from Study
  Country: GB (occurrence: GB)
  Receive Date: 20201105
  Receipt Date: 20201105
  Transmission Date: 20210114
  Serious: Yes (Life-Threatening, Other)
  Sender: FDA-Public Use
  Company Number: GB-MYLANLABS-2020M1092273

PATIENT
  Sex: Female

DRUGS (2)
  1. NERATINIB [Suspect]
     Active Substance: NERATINIB
     Indication: BREAST CANCER
     Dosage: 240 MILLIGRAM, QD
     Route: 048
  2. FULVESTRANT. [Suspect]
     Active Substance: FULVESTRANT
     Indication: BREAST CANCER
     Dosage: 500MG ON DAYS 1 AND 15 OF CYCLE 1 FOLLOWED BY DAY 1 OF CYCLE 2 OF EVERY 28 DAY CYCLE.
     Route: 030

REACTIONS (5)
  - Confusional state [Unknown]
  - Haematemesis [Unknown]
  - Hypoxia [Unknown]
  - Dyspnoea exertional [Unknown]
  - Seizure [Unknown]
